FAERS Safety Report 15356253 (Version 3)
Quarter: 2019Q1

REPORT INFORMATION
  Report Type: Spontaneous
  Country: US (occurrence: US)
  Receive Date: 20180906
  Receipt Date: 20190307
  Transmission Date: 20190417
  Serious: No
  Sender: FDA-Public Use
  Company Number: US-INTERCEPT-PMOCA2018001221

PATIENT

DRUGS (6)
  1. OCALIVA [Suspect]
     Active Substance: OBETICHOLIC ACID
     Indication: PRIMARY BILIARY CHOLANGITIS
     Dosage: 5 MG, QD
     Route: 048
     Dates: start: 20180506
  2. TRAMADOL. [Suspect]
     Active Substance: TRAMADOL
  3. FUROSEMIDE. [Concomitant]
     Active Substance: FUROSEMIDE
  4. ELIQUIS [Concomitant]
     Active Substance: APIXABAN
  5. OCALIVA [Suspect]
     Active Substance: OBETICHOLIC ACID
     Dosage: 10 MG, QD
     Route: 048
  6. POTASSIUM CHLORIDE. [Concomitant]
     Active Substance: POTASSIUM CHLORIDE

REACTIONS (7)
  - Skin exfoliation [Not Recovered/Not Resolved]
  - Pruritus [Not Recovered/Not Resolved]
  - Dry skin [Not Recovered/Not Resolved]
  - Urticaria [Unknown]
  - Rash [Unknown]
  - Hypersensitivity [Unknown]
  - Arthropathy [Unknown]

NARRATIVE: CASE EVENT DATE: 2018
